FAERS Safety Report 24241085 (Version 1)
Quarter: 2024Q3

REPORT INFORMATION
  Report Type: Spontaneous
  Country: AU (occurrence: AU)
  Receive Date: 20240823
  Receipt Date: 20240823
  Transmission Date: 20241016
  Serious: Yes (Life-Threatening, Hospitalization)
  Sender: SANDOZ
  Company Number: AU-ASPEN-AUS2024AU004795

PATIENT
  Age: 4 Decade
  Sex: Male

DRUGS (28)
  1. DIPRIVAN [Suspect]
     Active Substance: ISOPROPYL ALCOHOL\PROPOFOL
     Indication: Febrile infection-related epilepsy syndrome
     Route: 065
  2. CARBAMAZEPINE [Suspect]
     Active Substance: CARBAMAZEPINE
     Indication: Febrile infection-related epilepsy syndrome
     Dosage: UNK
     Route: 065
  3. CLONAZEPAM [Suspect]
     Active Substance: CLONAZEPAM
     Indication: Febrile infection-related epilepsy syndrome
     Dosage: UNK
     Route: 065
  4. DECADRON (DEXAMETHASONE SODIUM PHOSPHATE) [Suspect]
     Active Substance: DEXAMETHASONE SODIUM PHOSPHATE
     Indication: Haemophagocytic lymphohistiocytosis
     Route: 065
  5. DECADRON (DEXAMETHASONE SODIUM PHOSPHATE) [Suspect]
     Active Substance: DEXAMETHASONE SODIUM PHOSPHATE
     Indication: Encephalitis
  6. IMMUNE GLOBULIN NOS [Suspect]
     Active Substance: IMMUNE GLOBULIN NOS
     Indication: Febrile infection-related epilepsy syndrome
     Dosage: UNK
     Route: 042
  7. LEVETIRACETAM [Suspect]
     Active Substance: LEVETIRACETAM
     Indication: Febrile infection-related epilepsy syndrome
     Dosage: UNK
     Route: 065
  8. MIDAZOLAM HYDROCHLORIDE [Suspect]
     Active Substance: MIDAZOLAM HYDROCHLORIDE
     Indication: Febrile infection-related epilepsy syndrome
     Dosage: UNK
     Route: 065
  9. METHYLPREDNISOLONE [Suspect]
     Active Substance: METHYLPREDNISOLONE
     Indication: Febrile infection-related epilepsy syndrome
     Dosage: UNK
     Route: 065
  10. PHENOBARBITAL [Suspect]
     Active Substance: PHENOBARBITAL
     Indication: Febrile infection-related epilepsy syndrome
     Dosage: UNK
     Route: 065
  11. PHENYTOIN [Suspect]
     Active Substance: PHENYTOIN
     Indication: Febrile infection-related epilepsy syndrome
     Route: 065
  12. VALPROATE SODIUM [Suspect]
     Active Substance: VALPROATE SODIUM
     Indication: Febrile infection-related epilepsy syndrome
     Dosage: UNK
     Route: 065
  13. TOPIRAMATE [Suspect]
     Active Substance: TOPIRAMATE
     Indication: Febrile infection-related epilepsy syndrome
     Dosage: UNK
     Route: 065
  14. THIOPENTAL SODIUM [Suspect]
     Active Substance: THIOPENTAL SODIUM
     Indication: Febrile infection-related epilepsy syndrome
     Dosage: UNK
     Route: 065
  15. VANCOMYCIN [Suspect]
     Active Substance: VANCOMYCIN
     Indication: Encephalitis
     Dosage: UNK
     Route: 065
  16. ACETAZOLAMIDE [Concomitant]
     Active Substance: ACETAZOLAMIDE
     Indication: Febrile infection-related epilepsy syndrome
     Dosage: UNK
     Route: 065
  17. ACYCLOVIR [Concomitant]
     Active Substance: ACYCLOVIR
     Indication: Encephalitis
     Dosage: UNK
     Route: 065
  18. ANAKINRA [Concomitant]
     Active Substance: ANAKINRA
     Indication: Haemophagocytic lymphohistiocytosis
     Dosage: UNK
     Route: 065
  19. CEFTRIAXONE [Concomitant]
     Active Substance: CEFTRIAXONE\CEFTRIAXONE SODIUM
     Indication: Encephalitis
     Dosage: UNK
     Route: 065
  20. CLOBAZAM [Concomitant]
     Active Substance: CLOBAZAM
     Indication: Febrile infection-related epilepsy syndrome
     Dosage: UNK
     Route: 065
  21. ETOPOSIDE [Concomitant]
     Active Substance: ETOPOSIDE
     Indication: Haemophagocytic lymphohistiocytosis
     Dosage: UNK
     Route: 065
  22. GABAPENTIN [Concomitant]
     Active Substance: GABAPENTIN
     Indication: Febrile infection-related epilepsy syndrome
     Dosage: UNK
     Route: 065
  23. LACOSAMIDE [Concomitant]
     Active Substance: LACOSAMIDE
     Indication: Febrile infection-related epilepsy syndrome
     Dosage: UNK
     Route: 065
  24. METHOTREXATE [Concomitant]
     Active Substance: METHOTREXATE
     Indication: Haemophagocytic lymphohistiocytosis
     Dosage: UNK
     Route: 065
  25. MEXILETINE HYDROCHLORIDE [Concomitant]
     Active Substance: MEXILETINE HYDROCHLORIDE
     Indication: Febrile infection-related epilepsy syndrome
     Dosage: UNK
     Route: 065
  26. OXCARBAZEPINE [Concomitant]
     Active Substance: OXCARBAZEPINE
     Indication: Febrile infection-related epilepsy syndrome
     Dosage: UNK
     Route: 065
  27. PERAMPANEL [Concomitant]
     Active Substance: PERAMPANEL
     Indication: Febrile infection-related epilepsy syndrome
     Dosage: UNK
     Route: 065
  28. VIGABATRIN [Concomitant]
     Active Substance: VIGABATRIN
     Indication: Febrile infection-related epilepsy syndrome
     Dosage: UNK
     Route: 065

REACTIONS (2)
  - Drug ineffective [Unknown]
  - Off label use [Unknown]
